FAERS Safety Report 8739788 (Version 2)
Quarter: 2013Q4

REPORT INFORMATION
  Report Type: Spontaneous
  Country: US (occurrence: US)
  Receive Date: 20120823
  Receipt Date: 20131031
  Transmission Date: 20140711
  Serious: Yes (Life-Threatening, Hospitalization, Disabling)
  Sender: FDA-Public Use
  Company Number: US-009507513-1208USA008339

PATIENT
  Age: 86 Year
  Sex: Female

DRUGS (7)
  1. FOSAMAX [Suspect]
     Indication: OSTEOPOROSIS
     Dosage: 70 MG, QW
     Route: 048
  2. PRAVACHOL [Concomitant]
  3. JANUVIA [Concomitant]
     Route: 048
  4. METFORMIN [Concomitant]
  5. EXELON (RIVASTIGMINE TARTRATE) [Concomitant]
  6. ASPIRIN [Concomitant]
     Dosage: UNK, QD
  7. HYDRALAZINE [Concomitant]

REACTIONS (4)
  - Hypertensive emergency [Recovered/Resolved]
  - Mouth injury [Recovered/Resolved]
  - Stomatitis [Recovered/Resolved]
  - Drug administration error [Unknown]
